FAERS Safety Report 4796671-0 (Version None)
Quarter: 2005Q4

REPORT INFORMATION
  Report Type: 
  Country: None (occurrence: None)
  Receive Date: 20051011
  Receipt Date: 20050314
  Transmission Date: 20060501
  Serious: Yes (Other)
  Sender: FDA-Public Use
  Company Number: US-JNJFOC-20050304137

PATIENT
  Sex: 0

DRUGS (1)
  1. ULTRACET [Suspect]

REACTIONS (1)
  - DRUG ABUSER [None]
